FAERS Safety Report 24533254 (Version 1)
Quarter: 2024Q4

REPORT INFORMATION
  Report Type: Spontaneous
  Country: US (occurrence: None)
  Receive Date: 20241021
  Receipt Date: 20241021
  Transmission Date: 20250114
  Serious: Yes (Life-Threatening, Hospitalization, Disabling, Other)
  Sender: Public
  Company Number: None

PATIENT
  Age: 43 Year
  Sex: Female
  Weight: 44 kg

DRUGS (1)
  1. DEXTROAMPHETAMINE SACCHARATE, AMPHETAMINE ASPARTATE, DEXTROAMPHETAMINE [Suspect]
     Active Substance: AMPHETAMINE ASPARTATE\AMPHETAMINE SULFATE\DEXTROAMPHETAMINE SACCHARATE\DEXTROAMPHETAMINE SULFATE
     Indication: Attention deficit hyperactivity disorder
     Dosage: OTHER QUANTITY : 1.5 TABLET(S);?
     Route: 048
     Dates: start: 20240501

REACTIONS (13)
  - Headache [None]
  - Vision blurred [None]
  - Dizziness [None]
  - Hyperhidrosis [None]
  - Swollen tongue [None]
  - Oral mucosal blistering [None]
  - Heart rate irregular [None]
  - Hypoaesthesia [None]
  - Agitation [None]
  - Retching [None]
  - Hypophagia [None]
  - Tongue discolouration [None]
  - Dysuria [None]

NARRATIVE: CASE EVENT DATE: 20241021
